FAERS Safety Report 22301807 (Version 1)
Quarter: 2023Q2

REPORT INFORMATION
  Report Type: Report from Study
  Country: US (occurrence: US)
  Receive Date: 20230510
  Receipt Date: 20230510
  Transmission Date: 20230722
  Serious: No
  Sender: FDA-Public Use
  Company Number: US-ABBVIE-4739024

PATIENT
  Sex: Female

DRUGS (4)
  1. HUMIRA [Suspect]
     Active Substance: ADALIMUMAB
     Indication: Colitis ulcerative
     Dosage: CITRATE FREE FORM STRENGTH: 40 MG
     Route: 058
     Dates: start: 20170517, end: 20221220
  2. HUMIRA [Suspect]
     Active Substance: ADALIMUMAB
     Indication: Crohn^s disease
  3. DUPIXENT [Suspect]
     Active Substance: DUPILUMAB
     Indication: Gastric disorder
     Route: 065
  4. WELLBUTRIN [Concomitant]
     Active Substance: BUPROPION HYDROCHLORIDE
     Indication: Product used for unknown indication

REACTIONS (7)
  - Seasonal allergy [Unknown]
  - Immunodeficiency [Unknown]
  - COVID-19 [Unknown]
  - Croup infectious [Unknown]
  - Pneumonia [Unknown]
  - Asthma [Unknown]
  - Panic attack [Unknown]
